FAERS Safety Report 10100438 (Version 1)
Quarter: 2014Q2

REPORT INFORMATION
  Report Type: Spontaneous
  Country: FR (occurrence: FR)
  Receive Date: 20140423
  Receipt Date: 20140423
  Transmission Date: 20141212
  Serious: Yes (Hospitalization)
  Sender: FDA-Public Use
  Company Number: FR-JNJFOC-20140412985

PATIENT
  Age: 74 Year
  Sex: Female

DRUGS (10)
  1. IXPRIM [Suspect]
     Indication: PAIN
     Route: 048
  2. INEXIUM [Suspect]
     Indication: PRODUCT USED FOR UNKNOWN INDICATION
     Route: 048
  3. SPECIAFOLDINE [Suspect]
     Indication: ANAEMIA
     Route: 048
     Dates: start: 2013
  4. CARDENSIEL [Suspect]
     Indication: ATRIAL FLUTTER
     Route: 048
     Dates: start: 201303
  5. UVEDOSE [Suspect]
     Indication: VITAMIN D DEFICIENCY
     Route: 048
     Dates: start: 201311
  6. XARELTO [Suspect]
     Indication: ATRIAL FLUTTER
     Route: 048
     Dates: start: 201308, end: 20140119
  7. DOMPERIDONE [Concomitant]
     Indication: PRODUCT USED FOR UNKNOWN INDICATION
     Route: 048
     Dates: start: 201308
  8. PRADAXA [Concomitant]
     Indication: ATRIAL FLUTTER
     Route: 048
     Dates: start: 201303
  9. DOLIPRANE [Concomitant]
     Indication: PRODUCT USED FOR UNKNOWN INDICATION
     Route: 048
     Dates: start: 201308
  10. LANSOYL [Concomitant]
     Indication: PRODUCT USED FOR UNKNOWN INDICATION
     Route: 048
     Dates: start: 201308

REACTIONS (1)
  - Ischaemic stroke [Recovered/Resolved with Sequelae]
